FAERS Safety Report 7209645-7 (Version None)
Quarter: 2011Q1

REPORT INFORMATION
  Report Type: 
  Country: None (occurrence: None)
  Receive Date: 20110104
  Receipt Date: 20101227
  Transmission Date: 20110831
  Serious: Yes (Hospitalization)
  Sender: FDA-Public Use
  Company Number: NL-TEVA-261545ISR

PATIENT
  Age: 81 Year
  Sex: Male

DRUGS (7)
  1. OXAZEPAM [Concomitant]
     Indication: ANXIETY
  2. CITALOPRAM [Concomitant]
     Indication: DEPRESSION
  3. METOPROLOL SUCCINATE [Suspect]
     Indication: ANGINA PECTORIS
     Dates: start: 20041001
  4. CITALOPRAM [Concomitant]
     Indication: ANXIETY
  5. OXAZEPAM [Concomitant]
     Indication: DEPRESSION
  6. VALPROIC ACID [Concomitant]
     Indication: CONVULSION
     Dates: start: 20081101
  7. METOPROLOL SUCCINATE [Suspect]
     Indication: HYPERTENSION
     Dates: start: 20051001

REACTIONS (5)
  - SLEEP DISORDER [None]
  - ANXIETY [None]
  - CONVULSION [None]
  - DEPRESSION [None]
  - NIGHTMARE [None]
